FAERS Safety Report 21760710 (Version 2)
Quarter: 2023Q1

REPORT INFORMATION
  Report Type: Spontaneous
  Country: US (occurrence: US)
  Receive Date: 20221221
  Receipt Date: 20230104
  Transmission Date: 20230418
  Serious: No
  Sender: FDA-Public Use
  Company Number: US-Blueprint Medicines Corporation-SP-US-2022-003409

PATIENT
  Sex: Male

DRUGS (1)
  1. AYVAKIT [Interacting]
     Active Substance: AVAPRITINIB
     Indication: Systemic mastocytosis
     Route: 048
     Dates: start: 20220828

REACTIONS (4)
  - Acne [Not Recovered/Not Resolved]
  - Purulent discharge [Not Recovered/Not Resolved]
  - Nausea [Not Recovered/Not Resolved]
  - Mood altered [Recovered/Resolved]
